FAERS Safety Report 17645831 (Version 1)
Quarter: 2020Q2

REPORT INFORMATION
  Report Type: Spontaneous
  Country: US (occurrence: US)
  Receive Date: 20200408
  Receipt Date: 20200408
  Transmission Date: 20200713
  Serious: No
  Sender: FDA-Public Use
  Company Number: US-RECORDATI RARE DISEASES-2082521

PATIENT
  Sex: Male

DRUGS (1)
  1. CARBAGLU [Suspect]
     Active Substance: CARGLUMIC ACID
     Indication: ACIDOSIS
     Dates: start: 20190917

REACTIONS (3)
  - Ammonia increased [Unknown]
  - Expulsion of medication [Unknown]
  - Body temperature decreased [Unknown]
